FAERS Safety Report 4907931-4 (Version None)
Quarter: 2006Q1

REPORT INFORMATION
  Report Type: 
  Country: None (occurrence: None)
  Receive Date: 20060210
  Receipt Date: 20051208
  Transmission Date: 20060701
  Serious: Yes (Hospitalization)
  Sender: FDA-Public Use
  Company Number: GBWYE224112DEC05

PATIENT
  Sex: Female

DRUGS (5)
  1. ENBREL [Suspect]
     Indication: RHEUMATOID ARTHRITIS
     Dosage: 50 MG
     Dates: start: 20050815, end: 20051125
  2. PNEUMOVAX 23 [Suspect]
     Dosage: UNKNOWN
     Dates: start: 20051125
  3. LEFLUNOMIDE [Concomitant]
  4. DICLOFENAC [Concomitant]
  5. TRAMADOL [Concomitant]

REACTIONS (4)
  - ARTHRALGIA [None]
  - ARTHRITIS BACTERIAL [None]
  - MALAISE [None]
  - MOVEMENT DISORDER [None]
